FAERS Safety Report 4262186-1 (Version None)
Quarter: 2004Q1

REPORT INFORMATION
  Report Type: 
  Country: None (occurrence: None)
  Receive Date: 20040102
  Receipt Date: 20031230
  Transmission Date: 20041129
  Serious: Yes (Hospitalization)
  Sender: FDA-Public Use
  Company Number: WAES 0312FRA00089

PATIENT
  Age: 80 Year
  Sex: Female

DRUGS (5)
  1. ALENDRONATE SODIUM [Concomitant]
     Route: 048
  2. DICLOFENAC [Concomitant]
     Route: 048
  3. FLECAINIDE ACETATE [Suspect]
     Route: 048
     Dates: end: 20031105
  4. LERCANIDIPINE [Concomitant]
     Route: 048
  5. COZAAR [Suspect]
     Route: 048
     Dates: end: 20031105

REACTIONS (7)
  - BLADDER DISTENSION [None]
  - PYELONEPHRITIS [None]
  - PYREXIA [None]
  - RENAL FAILURE [None]
  - TACHYCARDIA [None]
  - TORSADE DE POINTES [None]
  - URINARY RETENTION [None]
